FAERS Safety Report 23685200 (Version 7)
Quarter: 2024Q4

REPORT INFORMATION
  Report Type: Report from Study
  Country: FR (occurrence: FR)
  Receive Date: 20240329
  Receipt Date: 20241202
  Transmission Date: 20250115
  Serious: Yes (Life-Threatening, Hospitalization)
  Sender: BIOGEN
  Company Number: FR-BIOGEN-2024BI01257720

PATIENT
  Age: 65 Year
  Sex: Female
  Weight: 102 kg

DRUGS (7)
  1. TOFERSEN [Suspect]
     Active Substance: TOFERSEN
     Indication: Amyotrophic lateral sclerosis
     Route: 050
     Dates: start: 20220402, end: 20240202
  2. TOFERSEN [Suspect]
     Active Substance: TOFERSEN
     Route: 050
     Dates: start: 20240422
  3. TOFERSEN [Suspect]
     Active Substance: TOFERSEN
     Route: 050
     Dates: start: 20220802, end: 20240202
  4. RILUZOLE [Concomitant]
     Active Substance: RILUZOLE
     Indication: Amyotrophic lateral sclerosis
     Dosage: IN THE MORNING AND EVENING
     Route: 050
     Dates: start: 20210309
  5. TOCOPHEROL [Concomitant]
     Active Substance: TOCOPHEROL
     Indication: Vitamin supplementation
     Route: 050
     Dates: start: 20210309
  6. ESCITALOPRAM [Concomitant]
     Active Substance: ESCITALOPRAM OXALATE
     Indication: Antidepressant therapy
     Route: 050
     Dates: start: 20210309
  7. RABEPRAZOLE SODIUM [Concomitant]
     Active Substance: RABEPRAZOLE SODIUM
     Indication: Gastrooesophageal reflux disease
     Route: 050
     Dates: start: 20210309

REACTIONS (1)
  - Bronchitis [Recovered/Resolved]

NARRATIVE: CASE EVENT DATE: 20240130
